FAERS Safety Report 6271805-X (Version None)
Quarter: 2009Q3

REPORT INFORMATION
  Report Type: 
  Country: None (occurrence: None)
  Receive Date: 20090717
  Receipt Date: 20090708
  Transmission Date: 20100115
  Serious: Yes (Other)
  Sender: FDA-Public Use
  Company Number: US-PFIZER INC-2007059932

PATIENT
  Sex: Female
  Weight: 68 kg

DRUGS (12)
  1. CHANTIX [Suspect]
     Indication: SMOKING CESSATION THERAPY
     Dosage: 1 MG, 2X/DAY
     Dates: start: 20070130
  2. KEFLEX [Suspect]
     Indication: LIP EXFOLIATION
     Dates: start: 20070101, end: 20070101
  3. PREMPRO [Concomitant]
     Dosage: 0.625/2.5 MILLIGRAM
     Route: 048
  4. PAXIL [Concomitant]
     Route: 048
  5. LIPITOR [Concomitant]
  6. DETROL LA [Concomitant]
  7. THEOPHYLLINE [Concomitant]
  8. CLOTRIMAZOLE [Concomitant]
  9. FLUCONAZOLE [Concomitant]
  10. ADVAIR HFA [Concomitant]
     Dosage: 250/50 ONE INHALATION
     Route: 055
  11. LOVASTATIN [Concomitant]
     Route: 048
  12. COMBIVENT [Concomitant]
     Dosage: 2 PUFFS

REACTIONS (6)
  - CANDIDIASIS [None]
  - CHEILITIS [None]
  - LIP EXFOLIATION [None]
  - LIP PAIN [None]
  - NIGHTMARE [None]
  - PAIN [None]
